FAERS Safety Report 15906595 (Version 1)
Quarter: 2019Q1

REPORT INFORMATION
  Report Type: Spontaneous
  Country: CN (occurrence: CN)
  Receive Date: 20190204
  Receipt Date: 20190204
  Transmission Date: 20190417
  Serious: Yes (Other)
  Sender: FDA-Public Use
  Company Number: CN-SA-2019SA030554

PATIENT
  Age: 56 Year
  Sex: Male
  Weight: 45 kg

DRUGS (4)
  1. PACLITAXEL. [Suspect]
     Active Substance: PACLITAXEL
     Indication: GASTRIC CANCER
     Dosage: 180 MG, QD
     Route: 041
     Dates: start: 20181204, end: 20181204
  2. SODIUM CHLORIDE. [Concomitant]
     Active Substance: SODIUM CHLORIDE
     Dosage: 500 ML, QD
     Route: 041
     Dates: start: 20181204, end: 20181204
  3. SODIUM CHLORIDE. [Concomitant]
     Active Substance: SODIUM CHLORIDE
     Dosage: 600 ML, QD
     Route: 041
     Dates: start: 20181204, end: 20181204
  4. ELOXATIN [Suspect]
     Active Substance: OXALIPLATIN
     Indication: GASTRIC CANCER
     Dosage: 120 MG, QD
     Route: 041
     Dates: start: 20181204, end: 20181204

REACTIONS (1)
  - Bone marrow failure [Unknown]

NARRATIVE: CASE EVENT DATE: 20181210
